FAERS Safety Report 7037339-X (Version None)
Quarter: 2010Q4

REPORT INFORMATION
  Report Type: 
  Country: None (occurrence: None)
  Receive Date: 20101011
  Receipt Date: 20101006
  Transmission Date: 20110411
  Serious: Yes (Other)
  Sender: FDA-Public Use
  Company Number: US-BAYER-201022930NA

PATIENT
  Age: 50 Year
  Sex: Male
  Weight: 91 kg

DRUGS (1)
  1. AVELOX [Suspect]
     Indication: BRONCHITIS
     Dosage: TOTAL DAILY DOSE: 800 MG  UNIT DOSE: 400 MG
     Route: 048
     Dates: start: 20091230, end: 20100103

REACTIONS (1)
  - MUSCLE RUPTURE [None]
